FAERS Safety Report 6338237-7 (Version None)
Quarter: 2009Q3

REPORT INFORMATION
  Report Type: 
  Country: None (occurrence: None)
  Receive Date: 20090902
  Receipt Date: 20090828
  Transmission Date: 20100115
  Serious: Yes (Hospitalization)
  Sender: FDA-Public Use
  Company Number: PHEH2009US09251

PATIENT
  Sex: Female

DRUGS (2)
  1. GLEEVEC [Suspect]
     Dosage: UNK
     Dates: start: 20090711
  2. GLEEVEC [Suspect]
     Dosage: 400 MG, UNK
     Dates: end: 20090817

REACTIONS (8)
  - COUGH [None]
  - DYSPHAGIA [None]
  - FAECALOMA [None]
  - HAEMATEMESIS [None]
  - HAEMORRHAGE [None]
  - LAPAROTOMY [None]
  - NAUSEA [None]
  - VOMITING [None]
